FAERS Safety Report 7516175-1 (Version None)
Quarter: 2011Q2

REPORT INFORMATION
  Report Type: 
  Country: None (occurrence: None)
  Receive Date: 20110601
  Receipt Date: 20110520
  Transmission Date: 20111010
  Serious: Yes (Hospitalization)
  Sender: FDA-Public Use
  Company Number: HU-ROCHE-778628

PATIENT
  Sex: Male
  Weight: 70 kg

DRUGS (3)
  1. BEVACIZUMAB [Suspect]
     Indication: GLIOBLASTOMA
     Dosage: LAST DOSE PRIOR TO SAE: 15 APRIL 2011. FROM: VIAL.
     Route: 042
     Dates: start: 20100901
  2. TEMOZOLOMIDE [Suspect]
     Indication: GLIOBLASTOMA
     Dosage: FREQUENCY: 5 DAY. LAST DOSE PRIOR TO SAE: 01 APRIL 2011.
     Route: 048
     Dates: start: 20100901
  3. METHYLPREDNISOLONE [Concomitant]
     Dates: start: 20100901

REACTIONS (1)
  - BRAIN OEDEMA [None]
